FAERS Safety Report 16314689 (Version 3)
Quarter: 2019Q3

REPORT INFORMATION
  Report Type: Spontaneous
  Country: US (occurrence: US)
  Receive Date: 20190515
  Receipt Date: 20190808
  Transmission Date: 20191004
  Serious: Yes (Hospitalization, Other)
  Sender: FDA-Public Use
  Company Number: US-ASTRAZENECA-2019SE67623

PATIENT
  Age: 79 Year
  Sex: Male
  Weight: 58.1 kg

DRUGS (54)
  1. PRILOSEC [Suspect]
     Active Substance: OMEPRAZOLE MAGNESIUM
     Indication: GASTROOESOPHAGEAL REFLUX DISEASE
     Route: 048
  2. PRILOSEC [Suspect]
     Active Substance: OMEPRAZOLE MAGNESIUM
     Indication: DYSPEPSIA
     Route: 048
     Dates: start: 2016
  3. PANTOPRAZOLE [Suspect]
     Active Substance: PANTOPRAZOLE
     Indication: GASTROOESOPHAGEAL REFLUX DISEASE
     Route: 065
     Dates: start: 2019
  4. CEFUROXIME. [Concomitant]
     Active Substance: CEFUROXIME
  5. COUMADIN [Concomitant]
     Active Substance: WARFARIN SODIUM
  6. DOXYCYCLINE HYCLATE. [Concomitant]
     Active Substance: DOXYCYCLINE HYCLATE
  7. CETRIZINE [Concomitant]
     Active Substance: CETIRIZINE HYDROCHLORIDE
  8. PRILOSEC [Suspect]
     Active Substance: OMEPRAZOLE MAGNESIUM
     Indication: GASTROOESOPHAGEAL REFLUX DISEASE
     Dosage: GENERIC
     Route: 065
     Dates: start: 2016
  9. PRILOSEC OTC [Suspect]
     Active Substance: OMEPRAZOLE MAGNESIUM
     Route: 048
  10. WARFARIN [Concomitant]
     Active Substance: WARFARIN
  11. XOPENEX [Concomitant]
     Active Substance: LEVALBUTEROL HYDROCHLORIDE
  12. LOSARTAN. [Concomitant]
     Active Substance: LOSARTAN
  13. QVAR [Concomitant]
     Active Substance: BECLOMETHASONE DIPROPIONATE
  14. HYDROCODONE [Concomitant]
     Active Substance: HYDROCODONE
  15. TAMSULOSIN [Concomitant]
     Active Substance: TAMSULOSIN
  16. ZOSTAVAX [Concomitant]
     Active Substance: VARICELLA-ZOSTER VIRUS STRAIN OKA/MERCK LIVE ANTIGEN
  17. IRON [Concomitant]
     Active Substance: IRON
  18. PREDNISONE. [Concomitant]
     Active Substance: PREDNISONE
  19. VITAMIN B12 [Concomitant]
     Active Substance: CYANOCOBALAMIN
  20. ALKA-SELTZER [Concomitant]
     Active Substance: ANHYDROUS CITRIC ACID\ASPIRIN\SODIUM BICARBONATE
  21. NEXIUM [Suspect]
     Active Substance: ESOMEPRAZOLE MAGNESIUM
     Indication: GASTROOESOPHAGEAL REFLUX DISEASE
     Route: 065
  22. NEXIUM 24HR [Suspect]
     Active Substance: ESOMEPRAZOLE MAGNESIUM
     Route: 048
  23. FUROSEMIDE. [Concomitant]
     Active Substance: FUROSEMIDE
  24. AMOXICILLIN. [Concomitant]
     Active Substance: AMOXICILLIN
  25. CARVEDILOL. [Concomitant]
     Active Substance: CARVEDILOL
  26. FLOMAX CAP [Concomitant]
  27. FLUZONE SYRINGE [Concomitant]
  28. PREVNAR [Concomitant]
     Active Substance: PNEUMOCOCCAL 7-VALENT CONJUGATE VACCINE (DIPHTHERIA CRM197 PROTEIN)
  29. TRAMADOL. [Concomitant]
     Active Substance: TRAMADOL
  30. ASPIRIN. [Concomitant]
     Active Substance: ASPIRIN
  31. CALCIUM [Concomitant]
     Active Substance: CALCIUM
  32. VITAMIN C [Concomitant]
     Active Substance: ASCORBIC ACID
  33. CEPHALEXIN. [Concomitant]
     Active Substance: CEPHALEXIN
  34. FLUTICASONE. [Concomitant]
     Active Substance: FLUTICASONE
  35. METHYLPREDNISOL [Concomitant]
  36. MINOCYCLINE [Concomitant]
     Active Substance: MINOCYCLINE HYDROCHLORIDE
  37. PRILOSEC [Suspect]
     Active Substance: OMEPRAZOLE MAGNESIUM
     Indication: DYSPEPSIA
     Route: 048
  38. PRILOSEC [Suspect]
     Active Substance: OMEPRAZOLE MAGNESIUM
     Indication: GASTROOESOPHAGEAL REFLUX DISEASE
     Route: 048
     Dates: start: 2016
  39. PRILOSEC [Suspect]
     Active Substance: OMEPRAZOLE MAGNESIUM
     Indication: DYSPEPSIA
     Dosage: GENERIC
     Route: 065
     Dates: start: 2016
  40. MONTELUKAST [Concomitant]
     Active Substance: MONTELUKAST SODIUM
  41. TORSEMIDE. [Concomitant]
     Active Substance: TORSEMIDE
  42. BENZONATATE. [Concomitant]
     Active Substance: BENZONATATE
  43. FINASTERIDE. [Concomitant]
     Active Substance: FINASTERIDE
  44. LORAZEPAM. [Concomitant]
     Active Substance: LORAZEPAM
  45. METOPROLOL SUCCINATE. [Concomitant]
     Active Substance: METOPROLOL SUCCINATE
  46. VITAMIN D [Concomitant]
     Active Substance: VITAMIN D NOS
  47. NEXIUM [Suspect]
     Active Substance: ESOMEPRAZOLE MAGNESIUM
     Indication: GASTROOESOPHAGEAL REFLUX DISEASE
     Route: 048
     Dates: start: 1986
  48. AMIODARONE [Concomitant]
     Active Substance: AMIODARONE
  49. ENTRESTO [Concomitant]
     Active Substance: SACUBITRIL\VALSARTAN
  50. TOPROL XL [Concomitant]
     Active Substance: METOPROLOL SUCCINATE
  51. TUMS [Concomitant]
     Active Substance: CALCIUM CARBONATE
  52. CICLOPIROX. [Concomitant]
     Active Substance: CICLOPIROX
  53. VITAMIN A [Concomitant]
     Active Substance: VITAMIN A
  54. ROLAIDS [Concomitant]
     Active Substance: CALCIUM CARBONATE\MAGNESIUM HYDROXIDE

REACTIONS (4)
  - Renal injury [Unknown]
  - Chronic kidney disease [Unknown]
  - Renal failure [Not Recovered/Not Resolved]
  - Rebound acid hypersecretion [Unknown]

NARRATIVE: CASE EVENT DATE: 2012
